FAERS Safety Report 8233567-6 (Version None)
Quarter: 2012Q1

REPORT INFORMATION
  Report Type: 
  Country: None (occurrence: None)
  Receive Date: 20120326
  Receipt Date: 20120315
  Transmission Date: 20120608
  Serious: Yes (Other)
  Sender: FDA-Public Use
  Company Number: CA-JNJFOC-20120307708

PATIENT
  Sex: Male
  Weight: 57 kg

DRUGS (4)
  1. AZATHIOPRINE [Concomitant]
     Route: 065
  2. FERROUS SULFATE TAB [Concomitant]
     Route: 065
  3. CALCIUM CARBONATE [Concomitant]
     Route: 065
  4. REMICADE [Suspect]
     Indication: COLITIS ULCERATIVE
     Route: 042

REACTIONS (4)
  - DECREASED APPETITE [None]
  - WEIGHT DECREASED [None]
  - DIARRHOEA [None]
  - PYREXIA [None]
